FAERS Safety Report 5287507-2 (Version None)
Quarter: 2007Q1

REPORT INFORMATION
  Report Type: 
  Country: None (occurrence: None)
  Receive Date: 20070116
  Receipt Date: 20061003
  Transmission Date: 20070707
  Serious: No
  Sender: FDA-Public Use
  Company Number: 2006SP003520

PATIENT
  Age: 52 Year
  Sex: Female
  Weight: 56.246 kg

DRUGS (3)
  1. LUNESTA [Suspect]
     Indication: INSOMNIA
     Dosage: 1 MG, 1X, ORAL
     Route: 048
     Dates: start: 20061002, end: 20061002
  2. CYMBALTA [Concomitant]
  3. PANTOPRAZOLE [Concomitant]

REACTIONS (1)
  - SOMNOLENCE [None]
